FAERS Safety Report 15003907 (Version 1)
Quarter: 2018Q2

REPORT INFORMATION
  Report Type: Spontaneous
  Country: US (occurrence: US)
  Receive Date: 20180524
  Receipt Date: 20180524
  Transmission Date: 20180711
  Serious: Yes (Death)
  Sender: FDA-Public Use
  Company Number: None

PATIENT
  Age: 71 Year
  Sex: Male
  Weight: 70 kg

DRUGS (1)
  1. WARFARIN [Suspect]
     Active Substance: WARFARIN

REACTIONS (15)
  - Necrosis [None]
  - Gangrene [None]
  - Lethargy [None]
  - Intra-abdominal haemorrhage [None]
  - Post procedural bile leak [None]
  - Feeling cold [None]
  - Disseminated intravascular coagulation [None]
  - Prothrombin time prolonged [None]
  - International normalised ratio increased [None]
  - Cold sweat [None]
  - Venous haemorrhage [None]
  - Faeces discoloured [None]
  - Blood pressure decreased [None]
  - Blood fibrinogen decreased [None]
  - Activated partial thromboplastin time prolonged [None]

NARRATIVE: CASE EVENT DATE: 20180104
